FAERS Safety Report 18573793 (Version 1)
Quarter: 2020Q4

REPORT INFORMATION
  Report Type: Spontaneous
  Country: US (occurrence: US)
  Receive Date: 20201202
  Receipt Date: 20201202
  Transmission Date: 20210114
  Serious: Yes (Hospitalization)
  Sender: FDA-Public Use
  Company Number: None

PATIENT
  Age: 91 Year
  Sex: Male

DRUGS (1)
  1. OXYCODONE (OXYCODONE HCL 5MG TAB) [Suspect]
     Active Substance: OXYCODONE HYDROCHLORIDE
     Indication: PAIN
     Route: 048
     Dates: start: 20110201, end: 20200708

REACTIONS (1)
  - Confusional state [None]

NARRATIVE: CASE EVENT DATE: 20200708
